FAERS Safety Report 4328631-8 (Version None)
Quarter: 2004Q1

REPORT INFORMATION
  Report Type: 
  Country: None (occurrence: None)
  Receive Date: 20040324
  Receipt Date: 20040308
  Transmission Date: 20041129
  Serious: Yes (Hospitalization)
  Sender: FDA-Public Use
  Company Number: 601132

PATIENT
  Age: 61 Year
  Sex: Female
  Weight: 67.6 kg

DRUGS (6)
  1. POLYGAM S/D [Suspect]
     Indication: IDIOPATHIC THROMBOCYTOPENIC PURPURA
     Dosage: 30 GM; Q6H; INTRAVENOUS
     Route: 042
     Dates: start: 20040302, end: 20040304
  2. DEXAMETHASONE [Concomitant]
  3. ACETAMINOPHEN [Concomitant]
  4. DANAZOL [Concomitant]
  5. PANTOPRAZOLE [Concomitant]
  6. SODIUM CHLORIDE 0.9% [Concomitant]

REACTIONS (12)
  - CHEST DISCOMFORT [None]
  - CHEST X-RAY ABNORMAL [None]
  - COUGH [None]
  - CREPITATIONS [None]
  - DILATATION ATRIAL [None]
  - DYSPNOEA [None]
  - EJECTION FRACTION DECREASED [None]
  - MITRAL VALVE INCOMPETENCE [None]
  - MITRAL VALVE STENOSIS [None]
  - OXYGEN SATURATION DECREASED [None]
  - TRANSFUSION-RELATED ACUTE LUNG INJURY [None]
  - WHEEZING [None]
